FAERS Safety Report 12721559 (Version 1)
Quarter: 2016Q3

REPORT INFORMATION
  Report Type: Spontaneous
  Country: US (occurrence: US)
  Receive Date: 20160907
  Receipt Date: 20160907
  Transmission Date: 20161109
  Serious: No
  Sender: FDA-Public Use
  Company Number: US-LANNETT COMPANY, INC.-1057120

PATIENT
  Age: 60 Year
  Sex: Female

DRUGS (1)
  1. URSODIOL. [Suspect]
     Active Substance: URSODIOL
     Route: 048
     Dates: start: 20160716, end: 20160719

REACTIONS (3)
  - Pruritus [Recovering/Resolving]
  - Nausea [Recovering/Resolving]
  - Rash [Recovering/Resolving]

NARRATIVE: CASE EVENT DATE: 20160716
